FAERS Safety Report 7162406-X (Version None)
Quarter: 2010Q4

REPORT INFORMATION
  Report Type: 
  Country: None (occurrence: None)
  Receive Date: 20101215
  Receipt Date: 20101210
  Transmission Date: 20110411
  Serious: Yes (Death)
  Sender: FDA-Public Use
  Company Number: ID-ROCHE-747857

PATIENT
  Age: 34 Year
  Sex: Female
  Weight: 64 kg

DRUGS (11)
  1. CEFTRIAXONE SODIUM [Suspect]
     Route: 065
     Dates: start: 20100704, end: 20100706
  2. OSELTAMIVIR [Suspect]
     Indication: AVIAN INFLUENZA
     Route: 065
     Dates: start: 20100707, end: 20100707
  3. CEFTAZIDIME [Concomitant]
     Dates: start: 20100706, end: 20100707
  4. MEROPENEM [Concomitant]
     Dates: start: 20100707, end: 20100707
  5. ACETAMINOPHEN [Concomitant]
     Dates: start: 20100704
  6. DOMPERIDONE [Concomitant]
     Dates: start: 20100702, end: 20100704
  7. RANITIDINE [Concomitant]
     Dates: start: 20100704
  8. ONDANSETRON [Concomitant]
     Dates: start: 20100704
  9. PROPOFOL [Concomitant]
     Dates: start: 20100707, end: 20100707
  10. MIDAZOLAM [Concomitant]
     Dates: start: 20100707, end: 20100707
  11. NORCURON [Concomitant]
     Dates: start: 20100707, end: 20100707

REACTIONS (1)
  - ACUTE RESPIRATORY DISTRESS SYNDROME [None]
